FAERS Safety Report 15551987 (Version 4)
Quarter: 2019Q2

REPORT INFORMATION
  Report Type: Spontaneous
  Country: US (occurrence: US)
  Receive Date: 20181025
  Receipt Date: 20190614
  Transmission Date: 20190711
  Serious: Yes (Other)
  Sender: FDA-Public Use
  Company Number: US-ASTRAZENECA-2018SF36941

PATIENT
  Age: 15085 Day
  Sex: Female
  Weight: 80.3 kg

DRUGS (52)
  1. PREVACID [Suspect]
     Active Substance: LANSOPRAZOLE
     Indication: GASTROOESOPHAGEAL REFLUX DISEASE
     Route: 065
     Dates: start: 2002, end: 2015
  2. ATORVASTATIN [Concomitant]
     Active Substance: ATORVASTATIN
  3. LISINOPRIL. [Concomitant]
     Active Substance: LISINOPRIL
  4. BENADRYL [Concomitant]
     Active Substance: DIPHENHYDRAMINE HYDROCHLORIDE
  5. SUMATRIPTAN. [Concomitant]
     Active Substance: SUMATRIPTAN
  6. DIVALPROEX [Concomitant]
     Active Substance: DIVALPROEX SODIUM
  7. PRILOSEC OTC [Suspect]
     Active Substance: OMEPRAZOLE MAGNESIUM
     Indication: GASTROOESOPHAGEAL REFLUX DISEASE
     Route: 048
     Dates: start: 2006, end: 2008
  8. OMEPRAZOLE. [Suspect]
     Active Substance: OMEPRAZOLE
     Indication: GASTROOESOPHAGEAL REFLUX DISEASE
     Route: 065
     Dates: start: 2009, end: 2015
  9. GABAPENTIN. [Concomitant]
     Active Substance: GABAPENTIN
  10. TIZANIDINE. [Concomitant]
     Active Substance: TIZANIDINE
  11. HYDROCODONE [Concomitant]
     Active Substance: HYDROCODONE
  12. LASIX [Concomitant]
     Active Substance: FUROSEMIDE
  13. ALPRAZOLAM. [Concomitant]
     Active Substance: ALPRAZOLAM
  14. PREVACID [Suspect]
     Active Substance: LANSOPRAZOLE
     Indication: GASTROOESOPHAGEAL REFLUX DISEASE
     Route: 065
     Dates: start: 2003
  15. AMITRIPTYLINE [Concomitant]
     Active Substance: AMITRIPTYLINE
  16. CEPHALEXIN. [Concomitant]
     Active Substance: CEPHALEXIN
  17. SMZ-TMP [Concomitant]
     Active Substance: SULFAMETHOXAZOLE\TRIMETHOPRIM
  18. LEVOFLOXACIN. [Concomitant]
     Active Substance: LEVOFLOXACIN
  19. BACLOFEN. [Concomitant]
     Active Substance: BACLOFEN
  20. ATENOLOL. [Concomitant]
     Active Substance: ATENOLOL
  21. CALCITRIOL. [Concomitant]
     Active Substance: CALCITRIOL
  22. FLUTICASONE. [Concomitant]
     Active Substance: FLUTICASONE
  23. TIMOLOL. [Concomitant]
     Active Substance: TIMOLOL
  24. VICODIN [Concomitant]
     Active Substance: ACETAMINOPHEN\HYDROCODONE BITARTRATE
  25. PROTONIX [Suspect]
     Active Substance: PANTOPRAZOLE SODIUM
     Indication: GASTROOESOPHAGEAL REFLUX DISEASE
     Route: 065
     Dates: start: 2002, end: 2015
  26. SIMVASTATIN. [Concomitant]
     Active Substance: SIMVASTATIN
  27. GABAPENTIN. [Concomitant]
     Active Substance: GABAPENTIN
  28. AZITHROMYCIN ANHYDROUS. [Concomitant]
     Active Substance: AZITHROMYCIN ANHYDROUS
  29. ZOFRAN [Concomitant]
     Active Substance: ONDANSETRON HYDROCHLORIDE
  30. NORTRIPTYLINE [Concomitant]
     Active Substance: NORTRIPTYLINE
  31. LANTUS [Concomitant]
     Active Substance: INSULIN GLARGINE
  32. TYLENOL [Concomitant]
     Active Substance: ACETAMINOPHEN
  33. KEPPRA [Concomitant]
     Active Substance: LEVETIRACETAM
  34. INDOMETHACIN. [Concomitant]
     Active Substance: INDOMETHACIN
  35. PRILOSEC OTC [Suspect]
     Active Substance: OMEPRAZOLE MAGNESIUM
     Indication: GASTROOESOPHAGEAL REFLUX DISEASE
     Route: 048
     Dates: start: 2002, end: 2015
  36. PROTONIX [Suspect]
     Active Substance: PANTOPRAZOLE SODIUM
     Indication: GASTROOESOPHAGEAL REFLUX DISEASE
     Route: 065
     Dates: start: 2002, end: 2008
  37. AMLODIPINE [Concomitant]
     Active Substance: AMLODIPINE BESYLATE
  38. BUSPIRON [Concomitant]
     Active Substance: BUSPIRONE HYDROCHLORIDE
  39. HUMALOG [Concomitant]
     Active Substance: INSULIN LISPRO
  40. PRAVASTATIN. [Concomitant]
     Active Substance: PRAVASTATIN
  41. CYCLOBENZAPRINE. [Concomitant]
     Active Substance: CYCLOBENZAPRINE
  42. ONDANSETRON [Concomitant]
     Active Substance: ONDANSETRON
  43. CITALOPRAM [Concomitant]
     Active Substance: CITALOPRAM HYDROBROMIDE
  44. OMEPRAZOLE. [Suspect]
     Active Substance: OMEPRAZOLE
     Indication: GASTROOESOPHAGEAL REFLUX DISEASE
     Route: 065
     Dates: start: 2008, end: 2015
  45. IBUPROFEN. [Concomitant]
     Active Substance: IBUPROFEN
  46. ZANTAC [Concomitant]
     Active Substance: RANITIDINE HYDROCHLORIDE
  47. PEPCID [Concomitant]
     Active Substance: FAMOTIDINE
  48. TUMS [Concomitant]
     Active Substance: CALCIUM CARBONATE
  49. CETRIZINE [Concomitant]
     Active Substance: CETIRIZINE HYDROCHLORIDE
  50. TOPIRAMATE. [Concomitant]
     Active Substance: TOPIRAMATE
  51. BIDIL [Concomitant]
     Active Substance: HYDRALAZINE HYDROCHLORIDE\ISOSORBIDE DINITRATE
  52. CLINDAMYCIN. [Concomitant]
     Active Substance: CLINDAMYCIN

REACTIONS (4)
  - Acute kidney injury [Not Recovered/Not Resolved]
  - Chronic kidney disease [Not Recovered/Not Resolved]
  - Renal failure [Unknown]
  - End stage renal disease [Unknown]

NARRATIVE: CASE EVENT DATE: 20170313
